FAERS Safety Report 18596862 (Version 1)
Quarter: 2020Q4

REPORT INFORMATION
  Report Type: Spontaneous
  Country: CZ (occurrence: CZ)
  Receive Date: 20201209
  Receipt Date: 20201209
  Transmission Date: 20210114
  Serious: Yes (Other)
  Sender: FDA-Public Use
  Company Number: CZ-TEVA-2020-CZ-1856822

PATIENT
  Sex: Male

DRUGS (6)
  1. IRINOTECAN [Suspect]
     Active Substance: IRINOTECAN
     Indication: COLORECTAL CANCER METASTATIC
     Dosage: FOLFIRI REGIMEN
     Route: 065
     Dates: start: 2015, end: 2016
  2. OXALIPLATIN. [Suspect]
     Active Substance: OXALIPLATIN
     Indication: COLORECTAL CANCER METASTATIC
     Dosage: FOLFOX REGIMEN 8 CYCLES
     Route: 065
     Dates: start: 2014, end: 2015
  3. CAPECITABINE. [Suspect]
     Active Substance: CAPECITABINE
     Indication: COLORECTAL CANCER METASTATIC
     Route: 065
     Dates: start: 2014, end: 2014
  4. FOLINIC ACID [Suspect]
     Active Substance: LEUCOVORIN
     Indication: COLORECTAL CANCER METASTATIC
     Dosage: FOLFOX REGIMEN
     Route: 065
     Dates: start: 2014, end: 2015
  5. FOLINIC ACID [Suspect]
     Active Substance: LEUCOVORIN
     Route: 065
  6. FOLINIC ACID [Suspect]
     Active Substance: LEUCOVORIN
     Dosage: FOLFIRI REGIMEN
     Route: 065
     Dates: start: 2015, end: 2016

REACTIONS (8)
  - Diarrhoea [Unknown]
  - Neurotoxicity [Unknown]
  - Skin toxicity [Unknown]
  - Alopecia [Unknown]
  - Hypersensitivity [Unknown]
  - Toxicity to various agents [Unknown]
  - Weight decreased [Unknown]
  - Fatigue [Unknown]

NARRATIVE: CASE EVENT DATE: 2014
